FAERS Safety Report 8423795-9 (Version None)
Quarter: 2012Q2

REPORT INFORMATION
  Report Type: 
  Country: None (occurrence: None)
  Receive Date: 20120608
  Receipt Date: 20120412
  Transmission Date: 20120825
  Serious: No
  Sender: FDA-Public Use
  Company Number: US-ASTRAZENECA-2007UW07118

PATIENT
  Age: 73 Year
  Sex: Female
  Weight: 65.3 kg

DRUGS (6)
  1. CRESTOR [Suspect]
     Indication: BLOOD CHOLESTEROL INCREASED
     Route: 048
  2. NEXIUM [Suspect]
     Indication: GASTROOESOPHAGEAL REFLUX DISEASE
     Route: 048
  3. VIT D3 [Concomitant]
     Indication: VITAMIN D DEFICIENCY
  4. VIT C [Concomitant]
  5. ATACAND [Suspect]
     Indication: HYPERTENSION
     Route: 048
     Dates: start: 20070101
  6. CO-Q-10 [Suspect]

REACTIONS (12)
  - EXOSTOSIS [None]
  - LIMB DISCOMFORT [None]
  - DRY THROAT [None]
  - MYALGIA [None]
  - DIZZINESS [None]
  - TREMOR [None]
  - HYPERHIDROSIS [None]
  - COUGH [None]
  - THROAT IRRITATION [None]
  - BACK PAIN [None]
  - RHINORRHOEA [None]
  - PAIN IN EXTREMITY [None]
